FAERS Safety Report 23080298 (Version 1)
Quarter: 2023Q4

REPORT INFORMATION
  Report Type: Spontaneous
  Country: IL (occurrence: IL)
  Receive Date: 20231018
  Receipt Date: 20231018
  Transmission Date: 20240110
  Serious: Yes (Other)
  Sender: FDA-Public Use
  Company Number: IL-TAKEDA-2023TUS097121

PATIENT
  Sex: Male

DRUGS (1)
  1. VYVANSE [Suspect]
     Active Substance: LISDEXAMFETAMINE DIMESYLATE
     Indication: Attention deficit hyperactivity disorder
     Dosage: 50 MILLIGRAM
     Route: 065
     Dates: start: 20230905

REACTIONS (23)
  - Schizophrenia [Recovered/Resolved]
  - Serotonin syndrome [Unknown]
  - Colitis [Recovering/Resolving]
  - Intervertebral disc protrusion [Recovering/Resolving]
  - Back pain [Recovering/Resolving]
  - Skin burning sensation [Recovering/Resolving]
  - Muscle tightness [Recovering/Resolving]
  - Arthralgia [Recovering/Resolving]
  - Speech disorder [Unknown]
  - Muscle spasms [Unknown]
  - Emotional distress [Unknown]
  - Tobacco user [Recovered/Resolved]
  - Feeling abnormal [Recovered/Resolved]
  - Paraesthesia [Unknown]
  - Headache [Recovered/Resolved]
  - Decreased appetite [Unknown]
  - Insomnia [Unknown]
  - Weight decreased [Unknown]
  - Irritability [Unknown]
  - Dizziness [Unknown]
  - Anxiety [Recovered/Resolved]
  - Affect lability [Recovering/Resolving]
  - Irritability [Unknown]
